FAERS Safety Report 7542774-7 (Version None)
Quarter: 2011Q2

REPORT INFORMATION
  Report Type: 
  Country: None (occurrence: None)
  Receive Date: 20110613
  Receipt Date: 20110527
  Transmission Date: 20111010
  Serious: Yes (Other)
  Sender: FDA-Public Use
  Company Number: B0722990A

PATIENT
  Sex: Female
  Weight: 54 kg

DRUGS (4)
  1. RITODRINE HYDROCHLORIDE [Concomitant]
  2. MAGNESIUM SULPHATE + GLUCOSE [Concomitant]
     Route: 042
  3. BETAMETHASONE [Concomitant]
  4. ARIXTRA [Suspect]
     Indication: THROMBOSIS PROPHYLAXIS
     Dosage: 2.5MG PER DAY
     Route: 058
     Dates: start: 20110516, end: 20110518

REACTIONS (2)
  - ANAEMIA [None]
  - PELVIC VENOUS THROMBOSIS [None]
